FAERS Safety Report 19656527 (Version 1)
Quarter: 2021Q3

REPORT INFORMATION
  Report Type: Spontaneous
  Country: US (occurrence: US)
  Receive Date: 20210802
  Receipt Date: 20210802
  Transmission Date: 20211014
  Serious: No
  Sender: FDA-Public Use
  Company Number: None

PATIENT

DRUGS (1)
  1. CEFTRIAXONE FOR INJECTION (+) DEXTROSE INJECTION [Suspect]
     Active Substance: CEFTRIAXONE
     Dosage: ?          OTHER ROUTE:INJECTION?

REACTIONS (1)
  - Circumstance or information capable of leading to medication error [None]
